FAERS Safety Report 4606288-6 (Version None)
Quarter: 2005Q2

REPORT INFORMATION
  Report Type: 
  Country: None (occurrence: None)
  Receive Date: 20050303
  Receipt Date: 20041215
  Transmission Date: 20051028
  Serious: No
  Sender: FDA-Public Use
  Company Number: 200421186BWH

PATIENT
  Age: 67 Year
  Sex: Male

DRUGS (1)
  1. LEVITRA [Suspect]
     Dosage: 5 MG, TOTAL DAILY, ORAL;  10 MG, TOTAL DAILY, ORAL
     Route: 048

REACTIONS (2)
  - DIZZINESS [None]
  - HEADACHE [None]
